FAERS Safety Report 7890846-X (Version None)
Quarter: 2011Q4

REPORT INFORMATION
  Report Type: 
  Country: None (occurrence: None)
  Receive Date: 20111103
  Receipt Date: 20110726
  Transmission Date: 20120403
  Serious: No
  Sender: FDA-Public Use
  Company Number: US-AMGEN-USASP2011037943

PATIENT
  Sex: Female

DRUGS (1)
  1. ENBREL [Suspect]
     Indication: PSORIATIC ARTHROPATHY
     Dosage: 50 MG, QWK
     Dates: start: 20110101, end: 20110201

REACTIONS (7)
  - DISORIENTATION [None]
  - ONYCHOMADESIS [None]
  - PAIN [None]
  - BUTTERFLY RASH [None]
  - INFLUENZA LIKE ILLNESS [None]
  - PYREXIA [None]
  - INJECTION SITE ERYTHEMA [None]
